FAERS Safety Report 8723643 (Version 2)
Quarter: 2012Q4

REPORT INFORMATION
  Report Type: 
  Country: US (occurrence: US)
  Receive Date: 20120815
  Receipt Date: 20120903
  Transmission Date: 20130627
  Serious: Yes (Hospitalization)
  Sender: FDA-Public Use
  Company Number: US-BIOGENIDEC-2012BI030513

PATIENT
  Age: 51 Year
  Sex: Female

DRUGS (1)
  1. AVONEX [Suspect]
     Indication: MULTIPLE SCLEROSIS
     Route: 030
     Dates: start: 20010101, end: 201108

REACTIONS (6)
  - Anxiety [Recovered/Resolved]
  - Dyskinesia [Unknown]
  - Stress [Unknown]
  - Memory impairment [Unknown]
  - Tremor [Recovered/Resolved]
  - Fatigue [Unknown]
